FAERS Safety Report 4866336-5 (Version None)
Quarter: 2005Q4

REPORT INFORMATION
  Report Type: 
  Country: None (occurrence: None)
  Receive Date: 20051221
  Receipt Date: 20051213
  Transmission Date: 20060501
  Serious: Yes (Disabling, Other)
  Sender: FDA-Public Use
  Company Number: 2005167636

PATIENT
  Age: 42 Year
  Sex: Female
  Weight: 69.8539 kg

DRUGS (18)
  1. CELEBREX [Suspect]
     Indication: PAIN
     Dates: start: 20000101
  2. NEURONTIN [Suspect]
     Indication: PAIN IN EXTREMITY
  3. ALPRAZOLAM [Concomitant]
  4. CLONAZEPAM [Concomitant]
  5. PAXIL [Concomitant]
  6. PREMARIN [Concomitant]
  7. FLEXERIL [Concomitant]
  8. ULTRAM [Concomitant]
  9. LIDODERM (LIDOCAINE) [Concomitant]
  10. MAXALT [Concomitant]
  11. ZYRTEC-D 12 HOUR [Concomitant]
  12. NASONEX [Concomitant]
  13. LOTRISONE [Concomitant]
  14. HYDROCHLOROTHIAZIDE [Concomitant]
  15. SERUMLIPIDREDUCING AGENTS (SERUMLIPIDREDUCING AGENTS) [Concomitant]
  16. DRUG (DRUG) [Concomitant]
  17. AVANDIA [Concomitant]
  18. ANTI-DIABETES (ANTI-DIABETES) [Concomitant]

REACTIONS (5)
  - ARTHRITIS [None]
  - CARPAL TUNNEL SYNDROME [None]
  - DRUG INEFFECTIVE [None]
  - PHARMACEUTICAL PRODUCT COMPLAINT [None]
  - TREATMENT NONCOMPLIANCE [None]
